FAERS Safety Report 18199907 (Version 1)
Quarter: 2020Q3

REPORT INFORMATION
  Report Type: Spontaneous
  Country: AU (occurrence: AU)
  Receive Date: 20200827
  Receipt Date: 20200827
  Transmission Date: 20201103
  Serious: Yes (Hospitalization, Other)
  Sender: FDA-Public Use
  Company Number: AU-SCIEGEN-2020SCILIT00242

PATIENT
  Age: 33 Year
  Sex: Male

DRUGS (2)
  1. HYDROCHLOROTHIAZIDE TABLETS [Suspect]
     Active Substance: HYDROCHLOROTHIAZIDE
     Indication: PRODUCT USED FOR UNKNOWN INDICATION
     Route: 065
  2. DEFERASIROX. [Suspect]
     Active Substance: DEFERASIROX
     Indication: IRON OVERLOAD
     Dosage: 28 MG/KG
     Route: 065

REACTIONS (3)
  - Hypokalaemia [Recovering/Resolving]
  - Fanconi syndrome [Recovering/Resolving]
  - Hyponatraemia [Recovering/Resolving]
